FAERS Safety Report 6685385-8 (Version None)
Quarter: 2010Q2

REPORT INFORMATION
  Report Type: 
  Country: None (occurrence: None)
  Receive Date: 20100416
  Receipt Date: 20091123
  Transmission Date: 20101027
  Serious: No
  Sender: FDA-Public Use
  Company Number: US-AMGEN-KDL376223

PATIENT

DRUGS (9)
  1. SENSIPAR [Suspect]
     Indication: DRUG USE FOR UNKNOWN INDICATION
     Route: 048
     Dates: start: 20091014
  2. METOPROLOL TARTRATE [Concomitant]
  3. LISINOPRIL [Concomitant]
  4. CADUET [Concomitant]
  5. LANTUS [Concomitant]
  6. HUMAN INSULATARD [Concomitant]
  7. ASPIRIN [Concomitant]
  8. MULTIPLE VITAMINS [Concomitant]
  9. FOSRENOL [Concomitant]

REACTIONS (2)
  - BLOOD PARATHYROID HORMONE DECREASED [None]
  - MUSCLE TWITCHING [None]
